FAERS Safety Report 14492433 (Version 2)
Quarter: 2018Q2

REPORT INFORMATION
  Report Type: Spontaneous
  Country: US (occurrence: US)
  Receive Date: 20180206
  Receipt Date: 20180417
  Transmission Date: 20180711
  Serious: No
  Sender: FDA-Public Use
  Company Number: US-ALEXION PHARMACEUTICALS INC.-A201800660

PATIENT
  Sex: Male

DRUGS (1)
  1. KANUMA [Suspect]
     Active Substance: SEBELIPASE ALFA
     Indication: LYSOSOMAL ACID LIPASE DEFICIENCY
     Route: 065

REACTIONS (7)
  - Fall [Unknown]
  - Headache [Unknown]
  - Pyrexia [Unknown]
  - Malaise [Unknown]
  - Head injury [Unknown]
  - Dizziness [Unknown]
  - Cough [Unknown]
